FAERS Safety Report 18874096 (Version 2)
Quarter: 2021Q1

REPORT INFORMATION
  Report Type: Spontaneous
  Country: US (occurrence: US)
  Receive Date: 20210210
  Receipt Date: 20210318
  Transmission Date: 20210420
  Serious: Yes (Hospitalization)
  Sender: FDA-Public Use
  Company Number: US-009507513-2102USA002250

PATIENT
  Age: 71 Year
  Sex: Female

DRUGS (1)
  1. INTRON A [Suspect]
     Active Substance: INTERFERON ALFA-2B
     Indication: CUTANEOUS T-CELL LYMPHOMA
     Dosage: 0.33 MILLILITER, TIW
     Route: 058
     Dates: start: 20191007

REACTIONS (2)
  - Product dose omission issue [Unknown]
  - COVID-19 [Unknown]

NARRATIVE: CASE EVENT DATE: 20210102
